FAERS Safety Report 11474755 (Version 1)
Quarter: 2015Q3

REPORT INFORMATION
  Report Type: Spontaneous
  Country: US (occurrence: None)
  Receive Date: 20150902
  Receipt Date: 20150902
  Transmission Date: 20151125
  Serious: Yes (Hospitalization)
  Sender: FDA-Public Use
  Company Number: A-US2014-108819

PATIENT
  Age: 27 Year
  Sex: Female

DRUGS (3)
  1. ASPIRIN (ACETYLSALICYLIC ACID) [Concomitant]
     Active Substance: ASPIRIN
  2. VELETRI [Suspect]
     Active Substance: EPOPROSTENOL
     Indication: PULMONARY ARTERIAL HYPERTENSION
     Dosage: 56 NG/KG, PER MIN
     Route: 042
     Dates: start: 20110928
  3. REVATIO (SILDENAFIL CITRATE) [Concomitant]

REACTIONS (4)
  - Catheter site swelling [None]
  - Catheter site pain [None]
  - Catheter site erythema [None]
  - Device related infection [None]

NARRATIVE: CASE EVENT DATE: 20141120
